FAERS Safety Report 18392648 (Version 1)
Quarter: 2020Q4

REPORT INFORMATION
  Report Type: Spontaneous
  Country: JP (occurrence: JP)
  Receive Date: 20201016
  Receipt Date: 20201016
  Transmission Date: 20210114
  Serious: Yes (Other)
  Sender: FDA-Public Use
  Company Number: JP-DSJP-DSJ-2020-129598

PATIENT
  Age: 81 Year
  Sex: Female
  Weight: 37 kg

DRUGS (4)
  1. LANSOPRAZOLE. [Concomitant]
     Active Substance: LANSOPRAZOLE
     Dosage: UNK
     Route: 048
  2. LIXIANA TABLETS [Suspect]
     Active Substance: EDOXABAN TOSYLATE
     Indication: ATRIAL FIBRILLATION
     Dosage: UNK
     Route: 048
  3. VALSARTAN. [Concomitant]
     Active Substance: VALSARTAN
     Dosage: UNK
     Route: 048
  4. ATORVASTATIN                       /01326102/ [Concomitant]
     Active Substance: ATORVASTATIN
     Dosage: UNK
     Route: 048

REACTIONS (1)
  - Aortic valve stenosis [Unknown]
